FAERS Safety Report 6892196 (Version 2)
Quarter: 2014Q1

REPORT INFORMATION
  Report Type: Spontaneous
  Country: US (occurrence: US)
  Receive Date: 20090126
  Receipt Date: 20140223
  Transmission Date: 20141002
  Serious: Yes (Death, Hospitalization)
  Sender: FDA-Public Use
  Company Number: US-JNJFOC-20040603960

PATIENT
  Age: 23 Year
  Sex: Male

DRUGS (5)
  1. EXTRA STRENGTH TYLENOL [Suspect]
     Indication: PAIN
     Dosage: 1000-1500 MG, Q4-6H, PO
     Route: 048
     Dates: start: 19950413
  2. EXTRA STRENGTH TYLENOL [Suspect]
     Indication: INFLUENZA
     Dosage: 1000-1500 MG, Q4-6H, PO
     Route: 048
     Dates: start: 19950413
  3. TYLENOL 3 [Suspect]
     Indication: PAIN
     Route: 065
  4. THERAFLU [Suspect]
     Indication: NASOPHARYNGITIS
     Dosage: TOTAL OF 3 PACKETS
     Route: 065
  5. THERAFLU [Suspect]
     Indication: INFLUENZA
     Dosage: TOTAL OF 3 PACKETS
     Route: 065

REACTIONS (7)
  - Toxicity to various agents [Fatal]
  - Acute hepatic failure [Fatal]
  - Acute hepatic failure [Unknown]
  - Disseminated intravascular coagulation [Unknown]
  - Renal failure acute [Unknown]
  - Shock [Unknown]
  - Acute respiratory distress syndrome [Unknown]
